FAERS Safety Report 10020903 (Version 1)
Quarter: 2014Q1

REPORT INFORMATION
  Report Type: Spontaneous
  Country: US (occurrence: US)
  Receive Date: 20140319
  Receipt Date: 20140319
  Transmission Date: 20141002
  Serious: Yes (Death, Life-Threatening, Other)
  Sender: FDA-Public Use
  Company Number: US-ROCHE-1361468

PATIENT
  Age: 71 Year
  Sex: Female
  Weight: 87.8 kg

DRUGS (9)
  1. AVASTIN [Suspect]
     Indication: BREAST CANCER METASTATIC
     Route: 065
     Dates: start: 20131221
  2. XGEVA [Suspect]
     Indication: BREAST CANCER METASTATIC
     Route: 058
     Dates: start: 20110922
  3. ABRAXANE [Suspect]
     Indication: BREAST CANCER METASTATIC
     Route: 065
     Dates: start: 20131121, end: 20131121
  4. NEULASTA [Concomitant]
     Route: 065
  5. LINOLEIC ACID [Concomitant]
  6. EMEND [Concomitant]
  7. DEXAMETHASONE [Concomitant]
  8. KEVATRIL [Concomitant]
  9. SODIUM CHLORIDE [Concomitant]

REACTIONS (16)
  - Coma hepatic [Not Recovered/Not Resolved]
  - Neoplasm malignant [Fatal]
  - General physical health deterioration [Unknown]
  - Depressed level of consciousness [Unknown]
  - Leukopenia [Unknown]
  - Ascites [Unknown]
  - Skin necrosis [Unknown]
  - Dermatitis [Unknown]
  - Chills [Unknown]
  - Oedema peripheral [Unknown]
  - Dysphonia [Unknown]
  - Pyrexia [Unknown]
  - Mucosal inflammation [Unknown]
  - Speech disorder [Unknown]
  - Dyspnoea [Unknown]
  - Pruritus [Unknown]
